FAERS Safety Report 5336030-5 (Version None)
Quarter: 2007Q2

REPORT INFORMATION
  Report Type: 
  Country: None (occurrence: None)
  Receive Date: 20070302
  Receipt Date: 20070125
  Transmission Date: 20071010
  Serious: Yes (Life-Threatening)
  Sender: FDA-Public Use
  Company Number: PHEH2007US00917

PATIENT
  Sex: Male
  Weight: 79.4 kg

DRUGS (4)
  1. ENABLEX [Suspect]
     Indication: URINARY INCONTINENCE
     Dosage: 7.5 MG, QD, ORAL
     Route: 048
     Dates: start: 20061027, end: 20061220
  2. EFFEXOR [Concomitant]
  3. LIPITOR [Concomitant]
  4. TRICOR [Concomitant]

REACTIONS (5)
  - ANXIETY [None]
  - DRY EYE [None]
  - DRY MOUTH [None]
  - DRY SKIN [None]
  - HYPERTENSION [None]
